FAERS Safety Report 14880143 (Version 1)
Quarter: 2018Q2

REPORT INFORMATION
  Report Type: Spontaneous
  Country: FR (occurrence: FR)
  Receive Date: 20180511
  Receipt Date: 20180511
  Transmission Date: 20180711
  Serious: Yes (Other)
  Sender: FDA-Public Use
  Company Number: FR-MERCK KGAA-2047608

PATIENT
  Age: 51 Year
  Sex: Female
  Weight: 73 kg

DRUGS (1)
  1. NOVOTHYROX [Suspect]
     Active Substance: LEVOTHYROXINE SODIUM
     Indication: AUTOIMMUNE THYROIDITIS
     Route: 048
     Dates: start: 20170330, end: 20170914

REACTIONS (21)
  - Dizziness [Recovered/Resolved]
  - Chills [None]
  - Apathy [None]
  - Social avoidant behaviour [None]
  - Fear [None]
  - Emotional distress [None]
  - Amnesia [None]
  - Vertigo [Recovering/Resolving]
  - Irritability [None]
  - Personal relationship issue [None]
  - Lethargy [None]
  - Depressed mood [None]
  - Psychiatric symptom [None]
  - Nausea [Recovered/Resolved]
  - Depression [None]
  - Gastrointestinal disorder [Recovered/Resolved]
  - General physical health deterioration [Recovered/Resolved]
  - Feeling cold [None]
  - Loss of libido [None]
  - Suicidal ideation [None]
  - Negative thoughts [Recovered/Resolved]

NARRATIVE: CASE EVENT DATE: 2017
